FAERS Safety Report 6271916-9 (Version None)
Quarter: 2009Q3

REPORT INFORMATION
  Report Type: 
  Country: None (occurrence: None)
  Receive Date: 20090713
  Receipt Date: 20090506
  Transmission Date: 20100115
  Serious: No
  Sender: FDA-Public Use
  Company Number: 2009BM000108

PATIENT
  Age: 9 Year
  Sex: Female
  Weight: 22 kg

DRUGS (1)
  1. KUVAN [Suspect]
     Indication: PHENYLKETONURIA
     Dosage: 500 MG;QD;PO
     Route: 048
     Dates: start: 20081118, end: 20090201

REACTIONS (3)
  - NASOPHARYNGITIS [None]
  - PYREXIA [None]
  - VOMITING [None]
